FAERS Safety Report 20100138 (Version 3)
Quarter: 2023Q1

REPORT INFORMATION
  Report Type: Other
  Country: ZA (occurrence: None)
  Receive Date: 20211123
  Receipt Date: 20230214
  Transmission Date: 20230417
  Serious: Yes (Hospitalization, Other)
  Sender: FDA-Public Use
  Company Number: ZA-ROCHE-2957442

PATIENT
  Sex: Female

DRUGS (2)
  1. ACTEMRA [Suspect]
     Active Substance: TOCILIZUMAB
     Indication: Rheumatoid arthritis
     Route: 058
  2. ACTEMRA [Suspect]
     Active Substance: TOCILIZUMAB

REACTIONS (7)
  - Limb injury [Unknown]
  - Muscle rupture [Unknown]
  - Degenerative bone disease [Unknown]
  - Fall [Unknown]
  - Arthralgia [Unknown]
  - Internal haemorrhage [Unknown]
  - Back pain [Unknown]
